FAERS Safety Report 7455945-5 (Version None)
Quarter: 2011Q2

REPORT INFORMATION
  Report Type: 
  Country: None (occurrence: None)
  Receive Date: 20110503
  Receipt Date: 20110427
  Transmission Date: 20111010
  Serious: Yes (Congenital Anomaly)
  Sender: FDA-Public Use
  Company Number: PHHY2011GB35216

PATIENT

DRUGS (4)
  1. PACLITAXEL [Suspect]
     Dosage: MATERNAL DOSE
     Route: 064
  2. DOCETAXEL [Suspect]
     Dosage: MATERNAL DOSE
     Route: 064
  3. DOXORUBICIN HCL [Suspect]
     Dosage: MATERNAL DOSE: 50 MG/M2
     Route: 064
  4. CYCLOPHOSPHAMIDE [Suspect]
     Dosage: MATERNAL DOSE: 500 MG/M2, UNK
     Route: 064

REACTIONS (1)
  - PYLORIC STENOSIS [None]
